FAERS Safety Report 4280174-6 (Version None)
Quarter: 2004Q1

REPORT INFORMATION
  Report Type: 
  Country: None (occurrence: None)
  Receive Date: 20040126
  Receipt Date: 20040116
  Transmission Date: 20041129
  Serious: Yes (Hospitalization, Disabling)
  Sender: FDA-Public Use
  Company Number: 2003-08-1550

PATIENT
  Age: 43 Year
  Sex: Male

DRUGS (4)
  1. VIRAFERON (INTERFERON ALFA-2B) [Suspect]
     Indication: HEPATITIS C
     Dosage: 3 MU TIW SUBCUTANEOUS
     Route: 058
     Dates: start: 20000401, end: 20010701
  2. REBETOL [Suspect]
     Indication: HEPATITIS C
     Dosage: 1000 MG QD ORAL
     Route: 048
     Dates: start: 20000401, end: 20010701
  3. LOXEN (NICARDIPINE) [Concomitant]
  4. RAMIPRIL [Concomitant]

REACTIONS (23)
  - ANAEMIA MACROCYTIC [None]
  - ANTIBODY TEST POSITIVE [None]
  - AUTOIMMUNE DISORDER [None]
  - BLOOD CORTICOTROPHIN DECREASED [None]
  - BLOOD CORTISOL DECREASED [None]
  - BLOOD PROLACTIN INCREASED [None]
  - BLOOD TESTOSTERONE FREE DECREASED [None]
  - BLOOD THYROID STIMULATING HORMONE DECREASED [None]
  - DEAFNESS BILATERAL [None]
  - ENDOCRINE DISORDER [None]
  - GASTRIC ULCER [None]
  - GASTRITIS [None]
  - GONADOTROPHIN DEFICIENCY [None]
  - GROWTH HORMONE DEFICIENCY [None]
  - HYPOPITUITARISM [None]
  - HYPOVITAMINOSIS [None]
  - INAPPROPRIATE ANTIDIURETIC HORMONE SECRETION [None]
  - LABORATORY TEST ABNORMAL [None]
  - LIBIDO DECREASED [None]
  - MYALGIA [None]
  - THROMBOCYTOPENIA [None]
  - THYROXINE FREE DECREASED [None]
  - TINNITUS [None]
